FAERS Safety Report 6871203-1 (Version None)
Quarter: 2010Q3

REPORT INFORMATION
  Report Type: 
  Country: None (occurrence: None)
  Receive Date: 20100723
  Receipt Date: 20100713
  Transmission Date: 20110219
  Serious: Yes (Hospitalization)
  Sender: FDA-Public Use
  Company Number: JP-ROCHE-715846

PATIENT
  Sex: Female

DRUGS (15)
  1. TOCILIZUMAB [Suspect]
     Indication: RHEUMATOID ARTHRITIS
     Route: 042
     Dates: start: 20091008, end: 20091008
  2. TOCILIZUMAB [Suspect]
     Route: 042
     Dates: start: 20091124, end: 20091124
  3. TOCILIZUMAB [Suspect]
     Route: 042
     Dates: start: 20100121, end: 20100121
  4. TOCILIZUMAB [Suspect]
     Route: 042
     Dates: start: 20100601, end: 20100601
  5. MEDROL [Concomitant]
     Route: 048
     Dates: start: 20091013
  6. MEDROL [Concomitant]
     Route: 048
     Dates: start: 20091014, end: 20091105
  7. MEDROL [Concomitant]
     Route: 048
     Dates: start: 20091106
  8. RABEPRAZOLE SODIUM [Concomitant]
     Route: 048
  9. MYSLEE [Concomitant]
     Route: 048
  10. BONALON [Concomitant]
     Route: 048
  11. SELBEX [Concomitant]
     Route: 048
  12. LOXONIN [Concomitant]
     Route: 048
  13. GLAKAY [Concomitant]
     Route: 048
  14. DORNER [Concomitant]
     Route: 048
  15. FERROMIA [Concomitant]
     Route: 048

REACTIONS (2)
  - RHEUMATOID ARTHRITIS [None]
  - SKIN ULCER [None]
